FAERS Safety Report 4275385-X (Version None)
Quarter: 2004Q1

REPORT INFORMATION
  Report Type: 
  Country: None (occurrence: None)
  Receive Date: 20040116
  Receipt Date: 20040108
  Transmission Date: 20041129
  Serious: Yes (Death, Hospitalization)
  Sender: FDA-Public Use
  Company Number: 2004-01-0242

PATIENT
  Age: 72 Year
  Sex: Female

DRUGS (2)
  1. TEMOZOLOMIDE CAPSULES [Suspect]
     Indication: LYMPHOMA
     Dosage: 260 MGX5DQ28D ORAL
     Route: 048
  2. DECADRON [Suspect]
     Indication: LYMPHOMA
     Dosage: 24-8 MG DAY

REACTIONS (3)
  - GENERAL PHYSICAL HEALTH DETERIORATION [None]
  - PNEUMOCYSTIS CARINII PNEUMONIA [None]
  - PNEUMONIA FUNGAL [None]
